FAERS Safety Report 4486138-1 (Version None)
Quarter: 2004Q4

REPORT INFORMATION
  Report Type: 
  Country: None (occurrence: None)
  Receive Date: 20041026
  Receipt Date: 20041006
  Transmission Date: 20050328
  Serious: Yes (Disabling)
  Sender: FDA-Public Use
  Company Number: US-MERCK-0410USA00876

PATIENT
  Age: 62 Year
  Sex: Female

DRUGS (5)
  1. VIOXX [Suspect]
     Indication: RHEUMATOID ARTHRITIS
     Route: 048
     Dates: start: 20020101, end: 20040101
  2. LIPITOR [Concomitant]
     Route: 065
  3. LEVOTHROID [Concomitant]
     Route: 065
  4. FOLIC ACID [Concomitant]
     Route: 065
  5. OMEPRAZOLE [Concomitant]
     Route: 065

REACTIONS (5)
  - BRONCHITIS [None]
  - DRY THROAT [None]
  - HEADACHE [None]
  - HOARSENESS [None]
  - TREATMENT NONCOMPLIANCE [None]
